FAERS Safety Report 16038727 (Version 1)
Quarter: 2019Q1

REPORT INFORMATION
  Report Type: Spontaneous
  Country: CA (occurrence: CA)
  Receive Date: 20190305
  Receipt Date: 20190305
  Transmission Date: 20190418
  Serious: Yes (Other)
  Sender: FDA-Public Use
  Company Number: CA-009507513-1902CAN012344

PATIENT
  Age: 26 Year
  Sex: Female
  Weight: 61.22 kg

DRUGS (1)
  1. MARVELON [Suspect]
     Active Substance: DESOGESTREL\ETHINYL ESTRADIOL
     Indication: CONTRACEPTION
     Dosage: 1 DOSAGE FORM, 1 EVERY 1 DAY
     Route: 048

REACTIONS (3)
  - Varicose vein [Recovered/Resolved]
  - Peripheral swelling [Recovered/Resolved]
  - Limb discomfort [Recovered/Resolved]
